FAERS Safety Report 9178217 (Version 2)
Quarter: 2013Q2

REPORT INFORMATION
  Report Type: Report from Study
  Country: US (occurrence: US)
  Receive Date: 20121025
  Receipt Date: 20130411
  Transmission Date: 20140414
  Serious: Yes (Other)
  Sender: FDA-Public Use
  Company Number: US-RB-022557-11

PATIENT
  Sex: Female

DRUGS (4)
  1. SUBUTEX [Suspect]
     Indication: DRUG DETOXIFICATION
     Route: 065
     Dates: start: 201102, end: 2011
  2. LEXAPRO [Suspect]
     Indication: DEPRESSION
     Dosage: BEFORE BED TIME
     Route: 065
     Dates: start: 201103, end: 2011
  3. NICOTINE [Suspect]
     Indication: TOBACCO USER
     Dosage: SMOKING THROUGHOUT PREGNANCY
     Route: 055
  4. PRENATAL VITAMINS [Concomitant]
     Indication: PREGNANCY
     Dosage: DOSING DETAILS UNKNOWN
     Route: 065

REACTIONS (8)
  - Panic attack [Recovered/Resolved]
  - Fatigue [Recovered/Resolved]
  - Hot flush [Not Recovered/Not Resolved]
  - Thirst [Not Recovered/Not Resolved]
  - Dehydration [Not Recovered/Not Resolved]
  - Exposure during pregnancy [Recovered/Resolved]
  - Labour pain [Recovered/Resolved]
  - Premature delivery [Recovered/Resolved]
